FAERS Safety Report 13792566 (Version 3)
Quarter: 2017Q3

REPORT INFORMATION
  Report Type: Report from Study
  Country: US (occurrence: US)
  Receive Date: 20170725
  Receipt Date: 20170918
  Transmission Date: 20171127
  Serious: Yes (Hospitalization)
  Sender: FDA-Public Use
  Company Number: US-AMGEN-USACT2017111701

PATIENT
  Age: 51 Year
  Sex: Male
  Weight: 87.18 kg

DRUGS (2)
  1. PEMBROLIZUMAB. [Suspect]
     Active Substance: PEMBROLIZUMAB
     Indication: MALIGNANT MELANOMA
     Dosage: 200 MG, UNK
     Route: 042
     Dates: start: 20170626
  2. TALIMOGENE LAHERPAREPVEC [Suspect]
     Active Substance: TALIMOGENE LAHERPAREPVEC
     Indication: MALIGNANT MELANOMA
     Dosage: UNK
     Route: 026
     Dates: start: 20170626

REACTIONS (1)
  - Infusion related reaction [Recovered/Resolved]

NARRATIVE: CASE EVENT DATE: 20170718
